FAERS Safety Report 10301220 (Version 1)
Quarter: 2014Q3

REPORT INFORMATION
  Report Type: Spontaneous
  Country: US (occurrence: None)
  Receive Date: 20140708
  Receipt Date: 20140708
  Transmission Date: 20150326
  Serious: Yes (Hospitalization)
  Sender: FDA-Public Use
  Company Number: None

PATIENT
  Age: 63 Year
  Sex: Male
  Weight: 125.3 kg

DRUGS (2)
  1. ASPIRIN. [Suspect]
     Active Substance: ASPIRIN
     Dosage: MG, EVERY DAY, PO
     Route: 048
     Dates: start: 20130809, end: 20140514
  2. NABUMETONE. [Suspect]
     Active Substance: NABUMETONE
     Indication: RHEUMATOID ARTHRITIS
     Route: 048
     Dates: start: 20130809, end: 20140514

REACTIONS (2)
  - Haematochezia [None]
  - Gastric haemorrhage [None]

NARRATIVE: CASE EVENT DATE: 20140514
